FAERS Safety Report 8408392-3 (Version None)
Quarter: 2012Q2

REPORT INFORMATION
  Report Type: 
  Country: None (occurrence: None)
  Receive Date: 20120604
  Receipt Date: 20120525
  Transmission Date: 20120825
  Serious: Yes (Hospitalization)
  Sender: FDA-Public Use
  Company Number: KR-ELI_LILLY_AND_COMPANY-KR201205004822

PATIENT
  Age: 55 Year
  Sex: Female

DRUGS (3)
  1. ANALGESICS [Concomitant]
     Dosage: 1 DF, TID
     Route: 048
  2. HUMALOG MIX 75/25 [Suspect]
     Dosage: 8 U, QD
     Route: 058
     Dates: start: 20111201
  3. HUMALOG MIX 75/25 [Suspect]
     Indication: TYPE 2 DIABETES MELLITUS
     Dosage: 20 U, QD
     Route: 058
     Dates: start: 20111201

REACTIONS (6)
  - ARTHROPATHY [None]
  - MUSCULOSKELETAL PAIN [None]
  - BLOOD GLUCOSE INCREASED [None]
  - HYPOAESTHESIA [None]
  - JOINT SWELLING [None]
  - ROTATOR CUFF SYNDROME [None]
